FAERS Safety Report 7017990-3 (Version None)
Quarter: 2010Q3

REPORT INFORMATION
  Report Type: 
  Country: None (occurrence: None)
  Receive Date: 20100923
  Receipt Date: 20100914
  Transmission Date: 20110219
  Serious: Yes (Hospitalization, Other)
  Sender: FDA-Public Use
  Company Number: 699897

PATIENT
  Age: 11 Year
  Sex: Male

DRUGS (3)
  1. CYTARABINE [Suspect]
     Indication: T-CELL TYPE ACUTE LEUKAEMIA
     Dosage: INTRATHECAL
     Route: 037
  2. METHOTREXATE [Suspect]
     Indication: T-CELL TYPE ACUTE LEUKAEMIA
     Dosage: 5 G/M^2 PER 24 HOURS
  3. PREDNISONE [Suspect]
     Indication: T-CELL TYPE ACUTE LEUKAEMIA
     Dosage: INTRATHECAL
     Route: 037

REACTIONS (3)
  - BLOOD PRESSURE FLUCTUATION [None]
  - GRAND MAL CONVULSION [None]
  - REVERSIBLE POSTERIOR LEUKOENCEPHALOPATHY SYNDROME [None]
